FAERS Safety Report 5682473-X (Version None)
Quarter: 2008Q1

REPORT INFORMATION
  Report Type: 
  Country: None (occurrence: None)
  Receive Date: 20080326
  Receipt Date: 20080326
  Transmission Date: 20080703
  Serious: No
  Sender: FDA-Public Use
  Company Number: None

PATIENT
  Age: 79 Year
  Sex: Male
  Weight: 86 kg

DRUGS (10)
  1. ENOXAPARIN SODIUM [Suspect]
     Indication: ATRIAL FIBRILLATION
     Dosage: 80 MG SQ Q12 HR
     Dates: start: 20080121, end: 20080122
  2. ENOXAPARIN SODIUM [Suspect]
     Indication: CORONARY ARTERY DISEASE
     Dosage: 80 MG SQ Q12 HR
     Dates: start: 20080121, end: 20080122
  3. ENOXAPARIN SODIUM [Suspect]
     Indication: MITRAL VALVE DISEASE
     Dosage: 80 MG SQ Q12 HR
     Dates: start: 20080121, end: 20080122
  4. WARFARIN SODIUM [Suspect]
     Dosage: 10 MG PO OTO 1
     Route: 048
     Dates: start: 20080122
  5. ASPIRIN [Concomitant]
  6. BUMEX [Concomitant]
  7. DILT [Concomitant]
  8. DIGOXIN [Concomitant]
  9. LANSOPRAZOLE [Concomitant]
  10. DOCUSATE/SENNA [Concomitant]

REACTIONS (5)
  - DIZZINESS [None]
  - ECCHYMOSIS [None]
  - HAEMOGLOBIN DECREASED [None]
  - NAUSEA [None]
  - SCROTAL HAEMATOMA [None]
